FAERS Safety Report 4560793-X (Version None)
Quarter: 2005Q1

REPORT INFORMATION
  Report Type: 
  Country: None (occurrence: None)
  Receive Date: 20050124
  Receipt Date: 20050114
  Transmission Date: 20050727
  Serious: Yes (Death, Hospitalization)
  Sender: FDA-Public Use
  Company Number: 9721

PATIENT
  Age: 66 Year
  Sex: Male

DRUGS (3)
  1. IRINOTECAN [Suspect]
     Dosage: 180 MG/M2 FORTNIGHTLY INJ
  2. FLUOROURCIL [Suspect]
     Dosage: 600 MG/M2 FORTNIGHTLY INJ
  3. LEUCOVORIN [Suspect]
     Dosage: 200 MG/M2 FORTNIGHTLY

REACTIONS (13)
  - BLOOD LACTATE DEHYDROGENASE INCREASED [None]
  - HAEMODIALYSIS [None]
  - HYPERPHOSPHATAEMIA [None]
  - HYPERURICAEMIA [None]
  - HYPOCALCAEMIA [None]
  - HYPOCHROMASIA [None]
  - METABOLIC ACIDOSIS [None]
  - PH URINE DECREASED [None]
  - RED BLOOD CELL ANISOCYTES PRESENT [None]
  - RENAL FAILURE ACUTE [None]
  - SUDDEN CARDIAC DEATH [None]
  - TUMOUR LYSIS SYNDROME [None]
  - URINE SODIUM DECREASED [None]
